FAERS Safety Report 11444012 (Version 1)
Quarter: 2015Q3

REPORT INFORMATION
  Report Type: Spontaneous
  Country: DE (occurrence: DE)
  Receive Date: 20150901
  Receipt Date: 20150901
  Transmission Date: 20151125
  Serious: Yes (Other)
  Sender: FDA-Public Use
  Company Number: DE-AMGEN-DEUSP2015087919

PATIENT
  Sex: Female

DRUGS (2)
  1. XGEVA [Suspect]
     Active Substance: DENOSUMAB
     Indication: PRODUCT USED FOR UNKNOWN INDICATION
     Dosage: UNK
     Route: 065
  2. RAPAMUNE [Concomitant]
     Active Substance: SIROLIMUS
     Dosage: UNK

REACTIONS (3)
  - Tongue necrosis [Unknown]
  - Dyspnoea exertional [Unknown]
  - Aphthous ulcer [Unknown]
